FAERS Safety Report 8902987 (Version 1)
Quarter: 2012Q4

REPORT INFORMATION
  Report Type: 
  Country: ES (occurrence: ES)
  Receive Date: 20121112
  Receipt Date: 20121112
  Transmission Date: 20130627
  Serious: Yes (Other)
  Sender: FDA-Public Use
  Company Number: ES-ELI_LILLY_AND_COMPANY-ES201210009397

PATIENT
  Sex: Female

DRUGS (3)
  1. STRATTERA [Suspect]
     Dosage: UNK
  2. STRATTERA [Suspect]
     Dosage: UNK
     Dates: start: 201205
  3. STRATTERA [Suspect]
     Dosage: UNK
     Dates: start: 201209

REACTIONS (2)
  - Hepatitis [Unknown]
  - Nightmare [Recovered/Resolved]
